FAERS Safety Report 10950152 (Version 3)
Quarter: 2015Q2

REPORT INFORMATION
  Report Type: Spontaneous
  Country: TW (occurrence: TW)
  Receive Date: 20150324
  Receipt Date: 20150406
  Transmission Date: 20150821
  Serious: Yes (Hospitalization, Other)
  Sender: FDA-Public Use
  Company Number: TW-AMGEN-TWNSP2015026611

PATIENT
  Age: 61 Year
  Sex: Female

DRUGS (4)
  1. PLAQUENIL [Concomitant]
     Active Substance: HYDROXYCHLOROQUINE SULFATE
     Indication: RHEUMATOID ARTHRITIS
     Dosage: UNK
     Route: 048
  2. SULFASALAZINE. [Concomitant]
     Active Substance: SULFASALAZINE
     Indication: RHEUMATOID ARTHRITIS
     Dosage: UNK
     Route: 048
  3. METHOTREXATE (METHOTREXATE SODIUM) [Concomitant]
     Active Substance: METHOTREXATE SODIUM
     Indication: RHEUMATOID ARTHRITIS
     Dosage: UNK
     Route: 048
  4. ENBREL [Suspect]
     Active Substance: ETANERCEPT
     Indication: RHEUMATOID ARTHRITIS
     Dosage: 25 MG, 2X/WEEK
     Route: 058
     Dates: start: 20141225

REACTIONS (2)
  - Humerus fracture [Recovering/Resolving]
  - Fall [Unknown]

NARRATIVE: CASE EVENT DATE: 20150301
